FAERS Safety Report 6242703-2 (Version None)
Quarter: 2009Q2

REPORT INFORMATION
  Report Type: 
  Country: None (occurrence: None)
  Receive Date: 20090624
  Receipt Date: 20090618
  Transmission Date: 20091009
  Serious: Yes (Death, Other)
  Sender: FDA-Public Use
  Company Number: PHHY2009BR24524

PATIENT
  Sex: Female

DRUGS (6)
  1. EXFORGE [Suspect]
     Indication: HYPERTENSION
     Dosage: 1 TABLET/DAY
     Route: 048
     Dates: start: 20070101
  2. ANAFRANIL [Concomitant]
     Indication: DEMENTIA
     Dosage: 1 TABLET A DAY
     Route: 048
     Dates: start: 20070101
  3. FENERGAN [Concomitant]
     Dosage: 1 TABLET A DAY
     Route: 048
  4. OXCARBAZEPINE [Concomitant]
     Indication: AFFECTIVE DISORDER
     Dosage: 300 MG/DAY
     Route: 048
  5. HALDOL [Concomitant]
     Indication: SCHIZOPHRENIA
     Dosage: 2 DF/DAY
     Route: 048
  6. CALCIUM CARBONATE W/VITAMIN D NOS [Concomitant]
     Indication: OSTEOPOROSIS
     Dosage: 500 MG/400 IU/DAY
     Route: 048

REACTIONS (10)
  - CHOLECYSTITIS ACUTE [None]
  - CONVULSION [None]
  - DUODENITIS [None]
  - GASTRITIS [None]
  - HIATUS HERNIA [None]
  - HYPERTENSION [None]
  - INTESTINAL OBSTRUCTION [None]
  - OESOPHAGITIS [None]
  - SEPSIS [None]
  - SEPTIC SHOCK [None]
